FAERS Safety Report 13158113 (Version 1)
Quarter: 2017Q1

REPORT INFORMATION
  Report Type: Spontaneous
  Country: US (occurrence: US)
  Receive Date: 20170125
  Receipt Date: 20170125
  Transmission Date: 20170428
  Serious: Yes (Disabling)
  Sender: FDA-Public Use
  Company Number: None

PATIENT
  Age: 50 Year
  Sex: Female
  Weight: 74.25 kg

DRUGS (4)
  1. SULFAMETH/TMP 800/160MG TB [Suspect]
     Active Substance: SULFAMETHOXAZOLE\TRIMETHOPRIM
     Indication: CYSTITIS
     Dosage: ?          QUANTITY:1 CAPSULE(S);?
     Route: 048
     Dates: start: 20170119, end: 20170123
  2. LEVOTHYROXIN [Concomitant]
     Active Substance: LEVOTHYROXINE
  3. MULTIVITAMIN [Concomitant]
     Active Substance: VITAMINS
  4. CALCIUM [Concomitant]
     Active Substance: CALCIUM

REACTIONS (5)
  - Pruritus [None]
  - Influenza like illness [None]
  - Urticaria [None]
  - Pyrexia [None]
  - Swelling face [None]

NARRATIVE: CASE EVENT DATE: 20170122
